FAERS Safety Report 6801110-1 (Version None)
Quarter: 2010Q2

REPORT INFORMATION
  Report Type: 
  Country: None (occurrence: None)
  Receive Date: 20100629
  Receipt Date: 20100621
  Transmission Date: 20101027
  Serious: Yes (Other)
  Sender: FDA-Public Use
  Company Number: US-AMGEN-QUU419869

PATIENT
  Sex: Male

DRUGS (3)
  1. NPLATE [Suspect]
     Indication: IDIOPATHIC THROMBOCYTOPENIC PURPURA
     Dates: start: 20091229, end: 20100101
  2. RITUXIMAB [Concomitant]
     Dates: start: 20091224
  3. CORTICOSTEROIDS [Concomitant]
     Dates: start: 20091216

REACTIONS (1)
  - THERAPEUTIC RESPONSE DECREASED [None]
